FAERS Safety Report 23887409 (Version 3)
Quarter: 2025Q2

REPORT INFORMATION
  Report Type: Spontaneous
  Country: JP (occurrence: JP)
  Receive Date: 20240523
  Receipt Date: 20250518
  Transmission Date: 20250716
  Serious: Yes (Other)
  Sender: TAKEDA
  Company Number: JP-TAKEDA-2024TJP007229

PATIENT
  Age: 33 Year
  Sex: Female

DRUGS (10)
  1. INTUNIV [Suspect]
     Active Substance: GUANFACINE HYDROCHLORIDE
     Indication: Attention deficit hyperactivity disorder
  2. CHLORPROMAZINE [Suspect]
     Active Substance: CHLORPROMAZINE
     Indication: Product used for unknown indication
  3. DAYVIGO [Suspect]
     Active Substance: LEMBOREXANT
     Indication: Product used for unknown indication
  4. FLUNITRAZEPAM [Suspect]
     Active Substance: FLUNITRAZEPAM
     Indication: Product used for unknown indication
  5. ETIZOLAM [Suspect]
     Active Substance: ETIZOLAM
     Indication: Product used for unknown indication
  6. AMITRIPTYLINE [Suspect]
     Active Substance: AMITRIPTYLINE
     Indication: Product used for unknown indication
  7. CARBIMAZOLE [Suspect]
     Active Substance: CARBIMAZOLE
     Indication: Product used for unknown indication
  8. FEXOFENADINE HYDROCHLORIDE [Suspect]
     Active Substance: FEXOFENADINE HYDROCHLORIDE
     Indication: Product used for unknown indication
  9. LOXOPROFEN SODIUM [Suspect]
     Active Substance: LOXOPROFEN SODIUM
     Indication: Product used for unknown indication
  10. REBAMIPIDE [Suspect]
     Active Substance: REBAMIPIDE
     Indication: Product used for unknown indication

REACTIONS (4)
  - Suicidal ideation [Recovered/Resolved]
  - Blood pressure decreased [Recovered/Resolved]
  - Dizziness [Recovered/Resolved]
  - Overdose [Unknown]
